FAERS Safety Report 25495385 (Version 1)
Quarter: 2025Q2

REPORT INFORMATION
  Report Type: Spontaneous
  Country: US (occurrence: US)
  Receive Date: 20250630
  Receipt Date: 20250630
  Transmission Date: 20250716
  Serious: No
  Sender: FOUNDATION CONSUMER HEALTHCARE
  Company Number: US-FOUNDATIONCONSUMERHC-2025-US-003680

PATIENT
  Age: 31 Year
  Sex: Female
  Weight: 58.51 kg

DRUGS (7)
  1. PLAN B ONE-STEP [Suspect]
     Active Substance: LEVONORGESTREL
     Indication: Post coital contraception
     Route: 048
     Dates: start: 202403, end: 202403
  2. VITAMIN D [Concomitant]
     Active Substance: VITAMIN D NOS
  3. VITAMIN C [Concomitant]
     Active Substance: ASCORBIC ACID
  4. ACETYLCYSTEINE [Concomitant]
     Active Substance: ACETYLCYSTEINE
  5. FISH OIL [Concomitant]
     Active Substance: FISH OIL
  6. INOSITOL [Concomitant]
     Active Substance: INOSITOL
  7. MENAQUINONE 6 [Concomitant]
     Active Substance: MENAQUINONE 6

REACTIONS (2)
  - Vaginal haemorrhage [Not Recovered/Not Resolved]
  - Menstruation irregular [Not Recovered/Not Resolved]

NARRATIVE: CASE EVENT DATE: 20240301
